FAERS Safety Report 19113884 (Version 1)
Quarter: 2021Q2

REPORT INFORMATION
  Report Type: Report from Study
  Country: JP (occurrence: JP)
  Receive Date: 20210408
  Receipt Date: 20210408
  Transmission Date: 20210717
  Serious: Yes (Death)
  Sender: FDA-Public Use
  Company Number: JP-JNJFOC-A-US2019-184614

PATIENT
  Age: 79 Year
  Sex: Female

DRUGS (13)
  1. PREDONINE [Concomitant]
     Active Substance: PREDNISOLONE
     Route: 048
  2. ETIZOLAM [Concomitant]
     Active Substance: ETIZOLAM
     Route: 048
  3. OFEV [Concomitant]
     Active Substance: NINTEDANIB
     Route: 048
  4. BIO?THREE [Concomitant]
     Active Substance: HERBALS
     Route: 048
  5. ADSORBIN [Concomitant]
     Active Substance: ALUMINUM SILICATE
     Route: 048
  6. APO LANSOPRAZOLE ODT [Concomitant]
     Route: 048
  7. DONEPEZIL HYDROCHLORIDE OD KUNIHIRO [Concomitant]
     Route: 048
  8. OXYGEN. [Concomitant]
     Active Substance: OXYGEN
     Dosage: UNK
     Dates: start: 20181205, end: 20190105
  9. ADCIRCA [Concomitant]
     Active Substance: TADALAFIL
  10. DAIPHEN [Concomitant]
     Active Substance: SULFAMETHOXAZOLE\TRIMETHOPRIM
     Route: 048
  11. TRAZODONE [Concomitant]
     Active Substance: TRAZODONE HYDROCHLORIDE
     Route: 048
  12. ALBUMIN TANNATE [Concomitant]
     Active Substance: ALBUMIN TANNATE
     Route: 048
  13. VENTAVIS [Suspect]
     Active Substance: ILOPROST
     Indication: PULMONARY ARTERIAL HYPERTENSION
     Dosage: UNK
     Route: 055
     Dates: start: 20161101, end: 20181122

REACTIONS (3)
  - Respiratory failure [Fatal]
  - Influenza [Fatal]
  - Product supply issue [Unknown]

NARRATIVE: CASE EVENT DATE: 20181224
